FAERS Safety Report 24090223 (Version 1)
Quarter: 2024Q3

REPORT INFORMATION
  Report Type: Report from Study
  Country: US (occurrence: US)
  Receive Date: 20240715
  Receipt Date: 20240715
  Transmission Date: 20241017
  Serious: No
  Sender: TG THERAPEUTICS
  Company Number: US-TG THERAPEUTICS INC.-TGT003733

PATIENT

DRUGS (1)
  1. UBLITUXIMAB [Suspect]
     Active Substance: UBLITUXIMAB
     Indication: Multiple sclerosis
     Dosage: 150 MILLIGRAM
     Route: 042
     Dates: start: 20240618, end: 20240618

REACTIONS (4)
  - Infusion related reaction [Unknown]
  - Headache [Unknown]
  - Odynophagia [Unknown]
  - Fatigue [Unknown]

NARRATIVE: CASE EVENT DATE: 20240601
